FAERS Safety Report 18305766 (Version 1)
Quarter: 2020Q3

REPORT INFORMATION
  Report Type: Spontaneous
  Country: AU (occurrence: AU)
  Receive Date: 20200923
  Receipt Date: 20200923
  Transmission Date: 20201103
  Serious: Yes (Other)
  Sender: FDA-Public Use
  Company Number: AU-ANIPHARMA-2020-AU-000219

PATIENT
  Age: 77 Year
  Sex: Male

DRUGS (6)
  1. ALPRAX [Concomitant]
     Dosage: 0.5 MG UNK
     Route: 065
  2. VYTORIN [Concomitant]
     Active Substance: EZETIMIBE\SIMVASTATIN
     Dosage: 10/20 MG UNKNOWN
     Route: 065
  3. APO?CANDESARTAN+HYDROCHLOROTHIAZIDE [Suspect]
     Active Substance: CANDESARTAN CILEXETIL\HYDROCHLOROTHIAZIDE
     Dosage: 32/12.5 MG, HALF A TABLET TWICE A DAY
     Route: 065
     Dates: start: 20200704, end: 20200914
  4. ATACAND [Suspect]
     Active Substance: CANDESARTAN CILEXETIL
     Indication: HYPERTENSION
     Route: 048
  5. PARIET [Concomitant]
     Active Substance: RABEPRAZOLE SODIUM
     Dosage: 20 MG UNK
     Route: 065
  6. CARTIA [Concomitant]
     Dosage: 100 MG UNK
     Route: 065

REACTIONS (6)
  - Stomatitis [Unknown]
  - Dysphagia [Unknown]
  - Blood pressure increased [Unknown]
  - Oral pain [Unknown]
  - Glossodynia [Unknown]
  - Anaphylactic reaction [Unknown]

NARRATIVE: CASE EVENT DATE: 20200814
